FAERS Safety Report 11026005 (Version 1)
Quarter: 2015Q2

REPORT INFORMATION
  Report Type: Spontaneous
  Country: US (occurrence: US)
  Receive Date: 20150414
  Receipt Date: 20150414
  Transmission Date: 20150821
  Serious: Yes (Other)
  Sender: FDA-Public Use
  Company Number: US-PERRIGO-15US003650

PATIENT
  Age: 4 Year
  Sex: Female
  Weight: 41.8 kg

DRUGS (1)
  1. MIDAZOLAM HCL [Suspect]
     Active Substance: MIDAZOLAM HYDROCHLORIDE
     Indication: SEDATIVE THERAPY
     Dosage: 10 MG, SINGLE
     Route: 048

REACTIONS (5)
  - Abnormal behaviour [Recovered/Resolved]
  - Heart rate increased [Recovered/Resolved]
  - Paradoxical drug reaction [Recovered/Resolved]
  - Screaming [Recovered/Resolved]
  - Respiratory rate increased [Recovered/Resolved]
